FAERS Safety Report 23881818 (Version 1)
Quarter: 2024Q2

REPORT INFORMATION
  Report Type: Report from Study
  Country: US (occurrence: None)
  Receive Date: 20240521
  Receipt Date: 20240521
  Transmission Date: 20240716
  Serious: Yes (Other)
  Sender: FDA-Public Use
  Company Number: 2024A110515

PATIENT
  Sex: Male

DRUGS (1)
  1. BYDUREON BCISE [Suspect]
     Active Substance: EXENATIDE
     Route: 058

REACTIONS (8)
  - Myocardial infarction [Unknown]
  - Fear of death [Unknown]
  - Feeling abnormal [Unknown]
  - Fatigue [Unknown]
  - Irritability [Unknown]
  - Product dose omission issue [Unknown]
  - Cerebral disorder [Unknown]
  - Decreased activity [Unknown]
